FAERS Safety Report 14258213 (Version 1)
Quarter: 2017Q4

REPORT INFORMATION
  Report Type: Report from Study
  Country: GB (occurrence: GB)
  Receive Date: 20171207
  Receipt Date: 20171207
  Transmission Date: 20180321
  Serious: Yes (Other)
  Sender: FDA-Public Use
  Company Number: GB-ROCHE-2033740

PATIENT

DRUGS (2)
  1. PREDNISOLONE. [Suspect]
     Active Substance: PREDNISOLONE
     Indication: RHEUMATOID ARTHRITIS
     Route: 065
  2. RITUXIMAB. [Suspect]
     Active Substance: RITUXIMAB
     Indication: RHEUMATOID ARTHRITIS
     Route: 042

REACTIONS (13)
  - Chronic hepatitis C [Unknown]
  - Upper respiratory tract infection [Unknown]
  - Infection [Unknown]
  - Neutropenia [Unknown]
  - Interstitial lung disease [Unknown]
  - Lower respiratory tract infection [Unknown]
  - Skin infection [Unknown]
  - Soft tissue infection [Unknown]
  - Infusion related reaction [Unknown]
  - Urinary tract infection [Unknown]
  - Hypogammaglobulinaemia [Unknown]
  - Exposure to communicable disease [Unknown]
  - Herpes zoster [Unknown]
